FAERS Safety Report 19151192 (Version 2)
Quarter: 2021Q2

REPORT INFORMATION
  Report Type: Spontaneous
  Country: IN (occurrence: IN)
  Receive Date: 20210419
  Receipt Date: 20210426
  Transmission Date: 20210717
  Serious: Yes (Hospitalization, Other)
  Sender: FDA-Public Use
  Company Number: IN-CIPLA LTD.-2021IN02885

PATIENT

DRUGS (4)
  1. IFOSFAMIDE. [Concomitant]
     Active Substance: IFOSFAMIDE
     Indication: DIFFUSE LARGE B-CELL LYMPHOMA REFRACTORY
     Dosage: UNK, 7 CYCLES, R?GEMOX CHEMOTHERAPY
     Route: 065
  2. OXALIPLATIN. [Suspect]
     Active Substance: OXALIPLATIN
     Indication: DIFFUSE LARGE B-CELL LYMPHOMA REFRACTORY
     Dosage: UNK, 7 CYCLES, R?GEMOX CHEMOTHERAPY
     Route: 065
  3. GEMCITABINE. [Concomitant]
     Active Substance: GEMCITABINE
     Indication: DIFFUSE LARGE B-CELL LYMPHOMA REFRACTORY
     Dosage: UNK, 7 CYCLES, R?GEMOX CHEMOTHERAPY
     Route: 065
  4. RITUXIMAB. [Concomitant]
     Active Substance: RITUXIMAB
     Indication: DIFFUSE LARGE B-CELL LYMPHOMA REFRACTORY
     Dosage: UNK, 7 CYCLES, R?GEMOX CHEMOTHERAPY
     Route: 065

REACTIONS (3)
  - Venoocclusive liver disease [Recovering/Resolving]
  - Hepatitis E [Recovering/Resolving]
  - Hepatitis B reactivation [Recovering/Resolving]
